FAERS Safety Report 14433824 (Version 1)
Quarter: 2018Q1

REPORT INFORMATION
  Report Type: Report from Study
  Country: US (occurrence: US)
  Receive Date: 20180124
  Receipt Date: 20180124
  Transmission Date: 20180509
  Serious: Yes (Other)
  Sender: FDA-Public Use
  Company Number: US-BRISTOL-MYERS SQUIBB COMPANY-BMS-2018-004384

PATIENT
  Age: 78 Year
  Sex: Female
  Weight: 101.9 kg

DRUGS (1)
  1. NIVOLUMAB [Suspect]
     Active Substance: NIVOLUMAB
     Indication: ADENOCARCINOMA OF THE CERVIX
     Dosage: 240 MG, ON DAY 1 AND DAY 15
     Route: 042
     Dates: start: 20170525, end: 20171207

REACTIONS (3)
  - Rash maculo-papular [Not Recovered/Not Resolved]
  - Dermatitis psoriasiform [Unknown]
  - Acute generalised exanthematous pustulosis [Unknown]

NARRATIVE: CASE EVENT DATE: 20170908
